FAERS Safety Report 9372313 (Version 1)
Quarter: 2013Q2

REPORT INFORMATION
  Report Type: Report from Study
  Country: US (occurrence: US)
  Receive Date: 20130627
  Receipt Date: 20130627
  Transmission Date: 20140414
  Serious: Yes (Other)
  Sender: FDA-Public Use
  Company Number: US-MYLANLABS-2012S1020386

PATIENT
  Age: 64 Year
  Sex: Female

DRUGS (7)
  1. CLOZAPINE TABLETS [Suspect]
     Indication: SCHIZOPHRENIA
     Route: 048
     Dates: end: 20130218
  2. LEVOTHYROXINE [Concomitant]
  3. GEMFIBROZIL [Concomitant]
  4. HALOPERIDOL [Concomitant]
     Dosage: PRN
  5. QUETIAPINE [Concomitant]
  6. ENOXAPARIN [Concomitant]
  7. TRIHEXYPHENIDYL [Concomitant]

REACTIONS (2)
  - Granulocytopenia [Not Recovered/Not Resolved]
  - Leukopenia [Not Recovered/Not Resolved]
